FAERS Safety Report 23754392 (Version 1)
Quarter: 2024Q2

REPORT INFORMATION
  Report Type: Other
  Country: CA (occurrence: CA)
  Receive Date: 20240418
  Receipt Date: 20240418
  Transmission Date: 20240716
  Serious: Yes (Death)
  Sender: FDA-Public Use
  Company Number: CA-OrBion Pharmaceuticals Private Limited-2155710

PATIENT
  Age: 70 Year
  Sex: Female

DRUGS (4)
  1. MEMANTINE HYDROCHLORIDE [Suspect]
     Active Substance: MEMANTINE HYDROCHLORIDE
     Indication: Corticobasal degeneration
     Route: 065
  2. DONEPEZIL [Suspect]
     Active Substance: DONEPEZIL
     Route: 065
  3. RIVASTIGMINE [Suspect]
     Active Substance: RIVASTIGMINE
     Route: 065
  4. GALANTAMINE [Suspect]
     Active Substance: GALANTAMINE
     Route: 065

REACTIONS (1)
  - Drug ineffective [Fatal]
